FAERS Safety Report 9449173 (Version 2)
Quarter: 2013Q3

REPORT INFORMATION
  Report Type: Spontaneous
  Country: US (occurrence: None)
  Receive Date: 20130806
  Receipt Date: 20130918
  Transmission Date: 20140515
  Serious: Yes (Other)
  Sender: FDA-Public Use
  Company Number: ADR-2013-01312

PATIENT
  Sex: Male

DRUGS (2)
  1. BACLOFEN [Suspect]
     Dosage: 17.771 MCG/DAY
  2. MORPHINE [Suspect]
     Dosage: 2.221 MG/DAY

REACTIONS (21)
  - Activities of daily living impaired [None]
  - Pain [None]
  - Gait disturbance [None]
  - Arthralgia [None]
  - Feeling drunk [None]
  - Back pain [None]
  - Thinking abnormal [None]
  - Memory impairment [None]
  - Disturbance in attention [None]
  - Disturbance in attention [None]
  - Device malfunction [None]
  - Device occlusion [None]
  - Device failure [None]
  - Product formulation issue [None]
  - Drug effect decreased [None]
  - Device dislocation [None]
  - Pump reservoir issue [None]
  - Withdrawal syndrome [None]
  - Nausea [None]
  - Vomiting [None]
  - Pain [None]
